FAERS Safety Report 16038961 (Version 9)
Quarter: 2020Q2

REPORT INFORMATION
  Report Type: Report from Study
  Country: CA (occurrence: CA)
  Receive Date: 20190306
  Receipt Date: 20200625
  Transmission Date: 20200713
  Serious: Yes (Hospitalization, Other)
  Sender: FDA-Public Use
  Company Number: PHHY2013CA109584

PATIENT
  Age: 88 Year
  Sex: Male

DRUGS (2)
  1. SANDOSTATIN LAR DEPOT [Suspect]
     Active Substance: OCTREOTIDE ACETATE
     Indication: ANAEMIA
     Dosage: 20 MG, QMO
     Route: 030
     Dates: start: 20130924
  2. SANDOSTATIN [Suspect]
     Active Substance: OCTREOTIDE ACETATE
     Indication: ANAEMIA
     Dosage: UNK
     Route: 058
     Dates: start: 20130829, end: 20130919

REACTIONS (18)
  - Anaemia [Unknown]
  - Blood pressure diastolic decreased [Unknown]
  - Product use in unapproved indication [Unknown]
  - Faeces discoloured [Unknown]
  - Erythema [Unknown]
  - Hypokinesia [Unknown]
  - Stress [Unknown]
  - Therapeutic product effect delayed [Unknown]
  - Vomiting [Unknown]
  - Abdominal pain [Unknown]
  - Diarrhoea [Unknown]
  - Malaise [Not Recovered/Not Resolved]
  - Asthenia [Not Recovered/Not Resolved]
  - Heart rate decreased [Unknown]
  - Blood pressure increased [Unknown]
  - Psychiatric symptom [Unknown]
  - Muscle spasms [Unknown]
  - Decreased appetite [Unknown]

NARRATIVE: CASE EVENT DATE: 20140128
